FAERS Safety Report 15493329 (Version 1)
Quarter: 2018Q4

REPORT INFORMATION
  Report Type: Spontaneous
  Country: GB (occurrence: GB)
  Receive Date: 20181012
  Receipt Date: 20181012
  Transmission Date: 20190205
  Serious: Yes (Hospitalization)
  Sender: FDA-Public Use
  Company Number: GB-TEVA-2018-GB-963667

PATIENT
  Age: 87 Year
  Sex: Female

DRUGS (9)
  1. WIND-EZE [Concomitant]
  2. CANDESARTAN. [Suspect]
     Active Substance: CANDESARTAN
     Indication: HYPERTENSION
     Dosage: 8 MILLIGRAM DAILY; MORNING
     Route: 048
     Dates: end: 20180909
  3. AMLODIPINE [Suspect]
     Active Substance: AMLODIPINE BESYLATE
     Indication: HYPERTENSION
     Dosage: 5 MILLIGRAM DAILY; MORNING
     Route: 048
     Dates: end: 20180909
  4. FUROSEMIDE. [Suspect]
     Active Substance: FUROSEMIDE
     Indication: HYPERTENSION
     Dosage: 40 MILLIGRAM DAILY; MORNING
     Route: 048
     Dates: end: 20180909
  5. GLICLAZIDE [Concomitant]
     Active Substance: GLICLAZIDE
  6. OMEPRAZOLE. [Suspect]
     Active Substance: OMEPRAZOLE
     Indication: HYPERTENSION
     Dosage: 20 MILLIGRAM DAILY; MORNING
     Route: 048
     Dates: end: 20180909
  7. ATORVASTATIN [Concomitant]
     Active Substance: ATORVASTATIN
  8. LOPERAMIDE [Concomitant]
     Active Substance: LOPERAMIDE
  9. METFORMIN [Concomitant]
     Active Substance: METFORMIN HYDROCHLORIDE

REACTIONS (3)
  - Hyponatraemia [Not Recovered/Not Resolved]
  - Malaise [Unknown]
  - Orthostatic hypotension [Recovering/Resolving]

NARRATIVE: CASE EVENT DATE: 20180909
